FAERS Safety Report 25012004 (Version 1)
Quarter: 2025Q1

REPORT INFORMATION
  Report Type: Report from Study
  Country: CA (occurrence: CA)
  Receive Date: 20250226
  Receipt Date: 20250226
  Transmission Date: 20250409
  Serious: Yes (Death, Hospitalization, Other)
  Sender: DR REDDYS
  Company Number: CA-DRL-USA-CLI/CAN/24/0017635

PATIENT
  Age: 45 Year
  Sex: Male

DRUGS (1)
  1. ZOLEDRONIC ACID [Suspect]
     Active Substance: ZOLEDRONIC ACID
     Indication: Osteoporosis
     Dosage: DOSE: 5 MG/100ML
     Route: 065
     Dates: start: 20231116, end: 20231116

REACTIONS (6)
  - Death [Fatal]
  - Malaise [Not Recovered/Not Resolved]
  - Ear, nose and throat disorder [Unknown]
  - Nasopharyngitis [Unknown]
  - Sinus disorder [Unknown]
  - Gastrointestinal disorder [Unknown]

NARRATIVE: CASE EVENT DATE: 20250211
